FAERS Safety Report 20221657 (Version 1)
Quarter: 2021Q4

REPORT INFORMATION
  Report Type: Spontaneous
  Country: MY (occurrence: MY)
  Receive Date: 20211223
  Receipt Date: 20211223
  Transmission Date: 20220303
  Serious: Yes (Other)
  Sender: FDA-Public Use
  Company Number: MY-ABBVIE-21K-101-4208219-00

PATIENT
  Age: 56 Year
  Sex: Male

DRUGS (1)
  1. EPILIM [Suspect]
     Active Substance: VALPROATE SODIUM
     Indication: Seizure
     Route: 048

REACTIONS (1)
  - Thrombocytopenia [Unknown]
